FAERS Safety Report 23425270 (Version 1)
Quarter: 2024Q1

REPORT INFORMATION
  Report Type: Spontaneous
  Country: US (occurrence: US)
  Receive Date: 20240121
  Receipt Date: 20240121
  Transmission Date: 20240410
  Serious: No
  Sender: FDA-Public Use
  Company Number: US-TARO PHARMACEUTICALS USA INC.-2023TAR00477

PATIENT

DRUGS (1)
  1. CLOTRIMAZOLE [Suspect]
     Active Substance: CLOTRIMAZOLE
     Indication: Fungal infection
     Dosage: UNK
     Route: 065

REACTIONS (4)
  - Gait disturbance [Unknown]
  - Infection [Unknown]
  - Product container issue [Unknown]
  - Incorrect route of product administration [Unknown]
